FAERS Safety Report 9377728 (Version 2)
Quarter: 2013Q3

REPORT INFORMATION
  Report Type: Spontaneous
  Country: US (occurrence: US)
  Receive Date: 20130701
  Receipt Date: 20130821
  Transmission Date: 20140515
  Serious: Yes (Death, Hospitalization)
  Sender: FDA-Public Use
  Company Number: US-GILEAD-2013-0077828

PATIENT
  Age: 29 Year
  Sex: Female

DRUGS (5)
  1. CAYSTON [Suspect]
     Indication: PRODUCT USED FOR UNKNOWN INDICATION
     Dosage: 75 MG, UNK
     Route: 055
     Dates: start: 20100503
  2. LEVAQUIN [Concomitant]
  3. LINEZOLID [Concomitant]
  4. LANTUS [Concomitant]
  5. METHADONE [Concomitant]
     Indication: PAIN PROPHYLAXIS

REACTIONS (33)
  - Death [Fatal]
  - Unresponsive to stimuli [Recovered/Resolved]
  - Mental status changes [Recovered/Resolved]
  - Hypoglycaemia [Recovered/Resolved]
  - Infective pulmonary exacerbation of cystic fibrosis [Unknown]
  - Pneumonia [Unknown]
  - Septic shock [Unknown]
  - Pulmonary function test decreased [Unknown]
  - Obstructive airways disorder [Unknown]
  - Pancreatic insufficiency [Unknown]
  - Endometriosis [Unknown]
  - Uterine leiomyoma [Unknown]
  - Fatigue [Unknown]
  - Abdominal pain [Unknown]
  - Treatment noncompliance [Unknown]
  - Depression [Unknown]
  - Leukocytosis [Unknown]
  - Anaemia of chronic disease [Unknown]
  - Hypocalcaemia [Unknown]
  - Hypoalbuminaemia [Unknown]
  - Malnutrition [Unknown]
  - Malabsorption [Unknown]
  - Coagulopathy [Unknown]
  - Hepatitis acute [Unknown]
  - Hyperbilirubinaemia [Unknown]
  - Jaundice [Unknown]
  - Lactic acidosis [Unknown]
  - Hypotension [Unknown]
  - Hypokalaemia [Unknown]
  - Hyperglycaemia [Unknown]
  - Hospice care [Unknown]
  - Dyspnoea [Unknown]
  - Cough [Unknown]
